FAERS Safety Report 16405680 (Version 4)
Quarter: 2024Q3

REPORT INFORMATION
  Report Type: Spontaneous
  Country: US (occurrence: US)
  Receive Date: 20190607
  Receipt Date: 20240927
  Transmission Date: 20241017
  Serious: Yes (Hospitalization, Disabling)
  Sender: ELI LILLY AND CO
  Company Number: US-ELI_LILLY_AND_COMPANY-US201905014778

PATIENT
  Age: 50 Year
  Sex: Male

DRUGS (3)
  1. HUMALOG MIX50/50 [Suspect]
     Active Substance: INSULIN LISPRO
     Indication: Type 2 diabetes mellitus
     Dosage: 50 U, PRN (TWICE A DAY)
     Route: 058
     Dates: start: 2002
  2. HUMALOG MIX50/50 [Suspect]
     Active Substance: INSULIN LISPRO
     Dosage: 50 U, PRN (TWICE A DAY)
     Route: 058
  3. HUMALOG MIX50/50 [Suspect]
     Active Substance: INSULIN LISPRO
     Dosage: 150 U, PRN (SLIDING SCALE)
     Route: 058

REACTIONS (8)
  - Coronary artery occlusion [Unknown]
  - Spinal column injury [Unknown]
  - Multiple sclerosis [Unknown]
  - Fall [Unknown]
  - Hypertension [Unknown]
  - Post-acute COVID-19 syndrome [Unknown]
  - Intentional product misuse [Unknown]
  - Asthenia [Unknown]

NARRATIVE: CASE EVENT DATE: 20050101
